FAERS Safety Report 8935147 (Version 1)
Quarter: 2012Q4

REPORT INFORMATION
  Report Type: 
  Country: GB (occurrence: US)
  Receive Date: 20121129
  Receipt Date: 20121129
  Transmission Date: 20130627
  Serious: Yes (Hospitalization, Other)
  Sender: FDA-Public Use
  Company Number: GB-MPIJNJ-2012-08385

PATIENT
  Age: 69 Year
  Sex: Female
  Weight: 57.2 kg

DRUGS (11)
  1. VELCADE [Suspect]
     Indication: MULTIPLE MYELOMA
  2. ALBUTEROL                          /00139501/ [Concomitant]
     Indication: PRODUCT USED FOR UNKNOWN INDICATION
     Dosage: UNK UNK, qd
     Route: 048
  3. DEXAMETHASONE [Concomitant]
     Indication: PRODUCT USED FOR UNKNOWN INDICATION
     Dosage: UNK, bid
     Route: 048
  4. DOCUSATE SODIUM [Concomitant]
     Indication: PRODUCT USED FOR UNKNOWN INDICATION
     Dosage: UNK, bid
     Route: 048
  5. LEXAPRO [Concomitant]
     Indication: PRODUCT USED FOR UNKNOWN INDICATION
     Dosage: UNK, qd
     Route: 048
  6. OMEPRAZOLE [Concomitant]
     Indication: PRODUCT USED FOR UNKNOWN INDICATION
     Dosage: UNK, qd
     Route: 048
  7. SPIRIVA [Concomitant]
     Indication: PRODUCT USED FOR UNKNOWN INDICATION
     Dosage: UNK, qd
     Route: 055
  8. DIPHENHYDRAMINE HYDROCHLORIDE [Concomitant]
     Indication: PRURITUS
     Dosage: 50 mg, prn
     Route: 048
  9. HYDROCODONE BITARTRATE [Concomitant]
     Indication: PRODUCT USED FOR UNKNOWN INDICATION
     Dosage: UNK, prn
     Route: 048
  10. LOPERAMIDE [Concomitant]
     Indication: DIARRHOEA
     Dosage: UNK, prn
     Route: 048
  11. LORAZEPAM [Concomitant]
     Indication: NAUSEA
     Dosage: UNK, prn
     Route: 048

REACTIONS (4)
  - Weight decreased [Unknown]
  - Hypovolaemia [Unknown]
  - Failure to thrive [Recovered/Resolved]
  - Neuropathy peripheral [Unknown]
